FAERS Safety Report 7294865-6 (Version None)
Quarter: 2011Q1

REPORT INFORMATION
  Report Type: 
  Country: None (occurrence: None)
  Receive Date: 20110207
  Receipt Date: 20110124
  Transmission Date: 20110831
  Serious: Yes (Hospitalization)
  Sender: FDA-Public Use
  Company Number: 025012

PATIENT
  Sex: Female

DRUGS (11)
  1. REBAMIPIDE [Concomitant]
  2. ALENDRONATE SODIUM [Concomitant]
  3. AZATHIOPRINE SODIUM [Concomitant]
  4. PREDNISOLONE [Concomitant]
  5. INDOMETACIN [Concomitant]
  6. LANSOPRAZOLE [Concomitant]
  7. FERROUS SODIUM CITRATE [Concomitant]
  8. POLAPREZINC [Concomitant]
  9. CERTOLIZUMAB PEGOL (CERTOLIZUMAB PEGOL) [Suspect]
     Indication: RHEUMATOID ARTHRITIS
     Dosage: 200 MG 1X/2 WEEKS SUBCUTANEOUS
     Route: 058
     Dates: start: 20091225, end: 20101110
  10. CYANOCOBALAMIN [Concomitant]
  11. HYALURONATE SODIUM [Concomitant]

REACTIONS (3)
  - HAEMORRHOIDAL HAEMORRHAGE [None]
  - DRUG EFFECT DECREASED [None]
  - MELAENA [None]
